FAERS Safety Report 9343283 (Version 1)
Quarter: 2013Q2

REPORT INFORMATION
  Report Type: Spontaneous
  Country: CN (occurrence: CN)
  Receive Date: 20130612
  Receipt Date: 20130612
  Transmission Date: 20140414
  Serious: Yes (Other)
  Sender: FDA-Public Use
  Company Number: CN-009507513-1306CHN004544

PATIENT
  Age: 15 Year
  Sex: Male

DRUGS (1)
  1. DIPROSPAN [Suspect]
     Indication: URTICARIA PAPULAR
     Dosage: 1 ML, QD
     Route: 030
     Dates: start: 20120131, end: 20120131

REACTIONS (3)
  - Abdominal discomfort [Recovered/Resolved]
  - Eye swelling [Recovered/Resolved]
  - Nausea [Recovered/Resolved]
